FAERS Safety Report 18256046 (Version 4)
Quarter: 2020Q4

REPORT INFORMATION
  Report Type: Report from Study
  Country: None (occurrence: US)
  Receive Date: 20200911
  Receipt Date: 20201223
  Transmission Date: 20210113
  Serious: Yes (Hospitalization, Other)
  Sender: FDA-Public Use
  Company Number: US-ABBVIE-20K-163-3560932-00

PATIENT
  Sex: Male
  Weight: 134.84 kg

DRUGS (2)
  1. RINVOQ [Suspect]
     Active Substance: UPADACITINIB
     Indication: RHEUMATOID ARTHRITIS
     Route: 048
     Dates: end: 2019
  2. RINVOQ [Suspect]
     Active Substance: UPADACITINIB
     Route: 048
     Dates: start: 2020, end: 2020

REACTIONS (6)
  - Bladder cancer recurrent [Recovered/Resolved]
  - Bladder cancer recurrent [Not Recovered/Not Resolved]
  - Hypertension [Unknown]
  - Blood cholesterol increased [Unknown]
  - Bladder cancer recurrent [Recovered/Resolved]
  - Bladder neoplasm [Recovered/Resolved]

NARRATIVE: CASE EVENT DATE: 2019
